FAERS Safety Report 9706198 (Version 4)
Quarter: 2014Q1

REPORT INFORMATION
  Report Type: Report from Study
  Country: IT (occurrence: IT)
  Receive Date: 20131124
  Receipt Date: 20140226
  Transmission Date: 20141002
  Serious: Yes (Hospitalization, Other)
  Sender: FDA-Public Use
  Company Number: IT-ROCHE-1227542

PATIENT
  Age: 78 Year
  Sex: Male

DRUGS (1)
  1. VEMURAFENIB [Suspect]
     Indication: METASTATIC MALIGNANT MELANOMA
     Dosage: TWICE
     Route: 048
     Dates: start: 20130108

REACTIONS (3)
  - Haemothorax [Not Recovered/Not Resolved]
  - Disease progression [Unknown]
  - Skin papilloma [Recovered/Resolved]
